FAERS Safety Report 9833001 (Version 1)
Quarter: 2014Q1

REPORT INFORMATION
  Report Type: Report from Study
  Country: GB (occurrence: GB)
  Receive Date: 20140121
  Receipt Date: 20140121
  Transmission Date: 20141002
  Serious: Yes (Hospitalization)
  Sender: FDA-Public Use
  Company Number: GB-PFIZER INC-2014017036

PATIENT
  Age: 14 Year
  Sex: Male

DRUGS (6)
  1. DEXAMETHASONE SODIUM PHOSPHATE [Suspect]
     Dosage: UNK
     Dates: start: 20130703
  2. AVASTIN [Suspect]
     Dosage: 450 MG, SINGLE
     Route: 042
     Dates: start: 20130718
  3. TEMOZOLOMIDE [Suspect]
     Dosage: 105 MG, 1X/DAY
     Route: 048
     Dates: start: 20130718
  4. ONDANSETRON [Concomitant]
     Dosage: UNK
  5. SULFAMETHOXAZOLE [Concomitant]
     Dosage: UNK
  6. TRIMETHOPRIM [Concomitant]
     Dosage: UNK

REACTIONS (6)
  - Chest pain [Recovered/Resolved]
  - Constipation [Unknown]
  - Constipation [Unknown]
  - Pyrexia [Unknown]
  - Nausea [Unknown]
  - Vomiting [Unknown]
